FAERS Safety Report 23245998 (Version 1)
Quarter: 2023Q4

REPORT INFORMATION
  Report Type: Spontaneous
  Country: US (occurrence: None)
  Receive Date: 20231129
  Receipt Date: 20231129
  Transmission Date: 20240109
  Serious: No
  Sender: FDA-Public Use
  Company Number: None

PATIENT
  Age: 55 Year
  Sex: Female
  Weight: 78.75 kg

DRUGS (8)
  1. LEVOFLOXACIN [Suspect]
     Active Substance: LEVOFLOXACIN
     Indication: Sinusitis
     Dosage: OTHER QUANTITY : 1 TABLET(S);?FREQUENCY : DAILY;?
     Route: 048
     Dates: start: 20231121, end: 20231121
  2. AMLODIPINE BESYLATE [Concomitant]
     Active Substance: AMLODIPINE BESYLATE
  3. ZYRTEC [Concomitant]
     Active Substance: CETIRIZINE HYDROCHLORIDE
  4. allergy shots [Concomitant]
  5. VITAMINS [Concomitant]
     Active Substance: VITAMINS
  6. magnesium glycate [Concomitant]
  7. fiber pill [Concomitant]
  8. PROBIOTICS NOS [Concomitant]
     Active Substance: PROBIOTICS NOS

REACTIONS (11)
  - Diarrhoea [None]
  - Nausea [None]
  - Dizziness [None]
  - Disturbance in attention [None]
  - Vomiting [None]
  - Retching [None]
  - Confusional state [None]
  - Thinking abnormal [None]
  - Dyspnoea [None]
  - Wheezing [None]
  - Hypophagia [None]

NARRATIVE: CASE EVENT DATE: 20231121
